FAERS Safety Report 8909033 (Version 1)
Quarter: 2012Q4

REPORT INFORMATION
  Report Type: 
  Country: CA (occurrence: CA)
  Receive Date: 20121114
  Receipt Date: 20121114
  Transmission Date: 20130627
  Serious: Yes (Hospitalization, Other)
  Sender: FDA-Public Use
  Company Number: PHHY2012CA085521

PATIENT
  Sex: Male

DRUGS (6)
  1. CLOZARIL [Suspect]
     Indication: SCHIZOPHRENIA, PARANOID TYPE
     Dosage: 100mg BID and 200 mg H.S. at bedtime
     Route: 048
     Dates: start: 19990617
  2. OLANZAPINE [Concomitant]
     Dosage: 7.5 mg QD and 10mg HS
  3. LEVOCARB [Concomitant]
     Dosage: CARBIDOPA 100, LEVODOPA 25
  4. COMPLAN [Concomitant]
     Dosage: 200 mg, UNK
  5. LITHIUM CARBONATE [Concomitant]
     Dosage: 300 mg, BID
  6. FOLIC ACID [Concomitant]
     Dosage: 5 mg, QID

REACTIONS (2)
  - Abdominal pain [Recovered/Resolved]
  - Dyspepsia [Unknown]
